FAERS Safety Report 5221512-7 (Version None)
Quarter: 2007Q1

REPORT INFORMATION
  Report Type: 
  Country: None (occurrence: None)
  Receive Date: 20070126
  Receipt Date: 20070117
  Transmission Date: 20070707
  Serious: Yes (Other)
  Sender: FDA-Public Use
  Company Number: AU-PFIZER INC-2007005197

PATIENT
  Age: 70 Year
  Sex: Female

DRUGS (3)
  1. NORVASC [Suspect]
     Indication: HYPERTENSION
     Route: 048
  2. PARIET [Concomitant]
     Indication: GASTROOESOPHAGEAL REFLUX DISEASE
  3. ACTONEL [Concomitant]
     Dosage: FREQ:ONCE WEEKLY

REACTIONS (3)
  - NAUSEA [None]
  - TINNITUS [None]
  - VISUAL ACUITY REDUCED [None]
